FAERS Safety Report 7540129-2 (Version None)
Quarter: 2011Q2

REPORT INFORMATION
  Report Type: 
  Country: None (occurrence: None)
  Receive Date: 20110603
  Receipt Date: 20110520
  Transmission Date: 20111010
  Serious: No
  Sender: FDA-Public Use
  Company Number: 2011SP001693

PATIENT
  Age: 67 Year
  Sex: Female
  Weight: 71.7 kg

DRUGS (4)
  1. NEXIUM [Concomitant]
  2. XANAX [Concomitant]
  3. SYNTHROID [Concomitant]
  4. LATUDA [Suspect]
     Indication: INSOMNIA
     Dosage: 40 MG; HS; ORAL
     Route: 048
     Dates: start: 20110516, end: 20110521

REACTIONS (5)
  - MEMORY IMPAIRMENT [None]
  - EYE SWELLING [None]
  - INSOMNIA [None]
  - PSYCHOMOTOR HYPERACTIVITY [None]
  - FEELING ABNORMAL [None]
